FAERS Safety Report 9256783 (Version 1)
Quarter: 2013Q2

REPORT INFORMATION
  Report Type: Spontaneous
  Country: US (occurrence: None)
  Receive Date: 20130423
  Receipt Date: 20130423
  Transmission Date: 20140414
  Serious: Yes (Disabling)
  Sender: FDA-Public Use
  Company Number: None

PATIENT
  Age: 21 Year
  Sex: Male
  Weight: 120.2 kg

DRUGS (1)
  1. PROPECIA 1 MG MERCK [Suspect]
     Indication: ANDROGENETIC ALOPECIA
     Dosage: 1 MG  ONCE DAILY  PO
     Route: 048
     Dates: start: 20090801, end: 20101231

REACTIONS (6)
  - Depression [None]
  - Anxiety [None]
  - Muscle twitching [None]
  - Weight increased [None]
  - Muscle fatigue [None]
  - Blood testosterone decreased [None]
